FAERS Safety Report 10975564 (Version 1)
Quarter: 2015Q2

REPORT INFORMATION
  Report Type: Spontaneous
  Country: US (occurrence: US)
  Receive Date: 20150401
  Receipt Date: 20150401
  Transmission Date: 20150821
  Serious: No
  Sender: FDA-Public Use
  Company Number: US-GLAXOSMITHKLINE-US2015040430

PATIENT
  Age: 63 Year
  Sex: Female

DRUGS (2)
  1. XANAX [Concomitant]
     Active Substance: ALPRAZOLAM
  2. REQUIP [Suspect]
     Active Substance: ROPINIROLE HYDROCHLORIDE
     Indication: RESTLESS LEGS SYNDROME
     Dosage: 2 MG, U
     Route: 048

REACTIONS (12)
  - Cough [Recovering/Resolving]
  - Blood potassium decreased [Recovered/Resolved]
  - Asthenia [Unknown]
  - Vomiting [Recovered/Resolved]
  - Pyrexia [Recovered/Resolved]
  - Weight decreased [Recovered/Resolved]
  - Dehydration [Recovered/Resolved]
  - Bronchitis [Unknown]
  - Stress urinary incontinence [Unknown]
  - Decreased appetite [Unknown]
  - Blood cholesterol decreased [Recovered/Resolved]
  - Emergency care examination [Unknown]

NARRATIVE: CASE EVENT DATE: 201501
